FAERS Safety Report 4834636-0 (Version None)
Quarter: 2005Q4

REPORT INFORMATION
  Report Type: 
  Country: None (occurrence: None)
  Receive Date: 20051122
  Receipt Date: 20051116
  Transmission Date: 20060501
  Serious: Yes (Hospitalization)
  Sender: FDA-Public Use
  Company Number: 2005-04-2098

PATIENT
  Age: 57 Year
  Sex: Female
  Weight: 54.1 kg

DRUGS (6)
  1. WELLBUTRIN [Suspect]
     Indication: BIPOLAR DISORDER
     Route: 048
  2. SEROQUEL [Suspect]
     Indication: BIPOLAR DISORDER
     Route: 048
  3. PEG-INTRON [Suspect]
     Indication: HEPATITIS C
     Dosage: 150MCG WEEKLY
     Route: 058
     Dates: start: 20050204, end: 20050309
  4. REBETOL [Suspect]
     Indication: HEPATITIS C
     Dosage: 1200MG PER DAY
     Route: 048
     Dates: start: 20050204, end: 20050309
  5. ALCOHOL [Suspect]
     Indication: DRUG USE FOR UNKNOWN INDICATION
     Route: 048
  6. DEPAKOTE [Concomitant]
     Indication: BIPOLAR DISORDER
     Dosage: 750MG PER DAY
     Route: 048

REACTIONS (7)
  - ALCOHOLISM [None]
  - AMNESIA [None]
  - BIPOLAR DISORDER [None]
  - DEPRESSION [None]
  - OVERDOSE [None]
  - SUICIDAL IDEATION [None]
  - TEARFULNESS [None]
